FAERS Safety Report 18573464 (Version 2)
Quarter: 2021Q2

REPORT INFORMATION
  Report Type: Spontaneous
  Country: CN (occurrence: CN)
  Receive Date: 20201203
  Receipt Date: 20210428
  Transmission Date: 20210717
  Serious: Yes (Other)
  Sender: FDA-Public Use
  Company Number: CN-ROCHE-2725771

PATIENT
  Age: 74 Year
  Sex: Female

DRUGS (1)
  1. HERCEPTIN [Suspect]
     Active Substance: TRASTUZUMAB
     Indication: BREAST CANCER
     Route: 065

REACTIONS (6)
  - Pneumonia [Unknown]
  - Mitral valve incompetence [Unknown]
  - Asthenia [Unknown]
  - Platelet count decreased [Unknown]
  - Tricuspid valve incompetence [Unknown]
  - Headache [Unknown]
